FAERS Safety Report 6662183 (Version 2)
Quarter: 2013Q1

REPORT INFORMATION
  Report Type: Spontaneous
  Country: US (occurrence: None)
  Receive Date: 20080529
  Receipt Date: 20130117
  Transmission Date: 20140127
  Serious: Yes (Other)
  Sender: FDA-Public Use
  Company Number: 2008AP001224

PATIENT
  Age: 50 Year
  Sex: Female
  Weight: 99.8 kg

DRUGS (23)
  1. CEFAZOLIN [Suspect]
     Indication: ESCHERICHIA BACTERAEMIA
     Dosage: 1 GM; QD; IV
     Route: 042
     Dates: start: 20061014
  2. MORPHINE [Concomitant]
  3. PROMETHAZINE [Concomitant]
  4. CIPROFLOXACIN HYDROCHLORIDE [Concomitant]
  5. VANCOMYCIN [Concomitant]
  6. NAFCILLIN SODIUM [Concomitant]
  7. RIFAMPICIN [Concomitant]
  8. IMIPENEM [Concomitant]
  9. KETOROLAC TROMETHAMINE [Concomitant]
  10. EPOETIN ALFA [Concomitant]
  11. HEPARIN [Concomitant]
  12. METOPROLOL TARTRATE [Concomitant]
  13. SEVELAMER [Concomitant]
  14. SENNOSIDE A [Concomitant]
  15. MONTELUKAST [Concomitant]
  16. LORATADINE [Concomitant]
  17. PANTOPRAZOLE [Concomitant]
  18. BISACODYL [Concomitant]
  19. CAFFEINE [Concomitant]
  20. HYDROMORPHONE HYDROCHLORIDE [Concomitant]
  21. DOLASETRON [Concomitant]
  22. PARACETAMOL [Concomitant]
  23. SALBUTAMOL W/IPRATROPIUM [Concomitant]

REACTIONS (11)
  - Hypoprothrombinaemia [None]
  - International normalised ratio increased [None]
  - Catheter site haemorrhage [None]
  - Haemoglobin decreased [None]
  - Haematocrit decreased [None]
  - Blood pressure systolic increased [None]
  - Blood albumin decreased [None]
  - Prealbumin decreased [None]
  - Blood urea increased [None]
  - Blood creatinine increased [None]
  - Hypotension [None]
